FAERS Safety Report 4531433-0 (Version None)
Quarter: 2004Q4

REPORT INFORMATION
  Report Type: 
  Country: None (occurrence: None)
  Receive Date: 20041217
  Receipt Date: 20041109
  Transmission Date: 20050328
  Serious: Yes (Hospitalization, Other)
  Sender: FDA-Public Use
  Company Number: 2004091047

PATIENT
  Age: 52 Year
  Sex: Female
  Weight: 83.9154 kg

DRUGS (3)
  1. SUDAFED 12 HOUR [Suspect]
     Indication: NASAL CONGESTION
     Dosage: 2 TABLETS, PRN, ORAL
     Route: 048
     Dates: end: 20041101
  2. WARFARIN SODIUM [Concomitant]
  3. VITAMINS NOS (VITAMINS NOS) [Concomitant]

REACTIONS (5)
  - ANOREXIA [None]
  - BONE SCAN ABNORMAL [None]
  - BREAST CANCER FEMALE [None]
  - SINUSITIS [None]
  - TUMOUR MARKER INCREASED [None]
